FAERS Safety Report 8459656-9 (Version None)
Quarter: 2012Q2

REPORT INFORMATION
  Report Type: 
  Country: None (occurrence: None)
  Receive Date: 20120622
  Receipt Date: 20120613
  Transmission Date: 20120825
  Serious: Yes (Hospitalization, Other)
  Sender: FDA-Public Use
  Company Number: CA-JNJFOC-20120113579

PATIENT
  Sex: Female

DRUGS (4)
  1. REMICADE [Suspect]
     Route: 042
     Dates: start: 20120401
  2. REMICADE [Suspect]
     Route: 042
     Dates: start: 20120101
  3. REMICADE [Suspect]
     Route: 042
     Dates: start: 20120611
  4. REMICADE [Suspect]
     Indication: CROHN'S DISEASE
     Route: 042
     Dates: start: 20100101

REACTIONS (9)
  - CLOSTRIDIAL INFECTION [None]
  - PAIN [None]
  - THERAPEUTIC RESPONSE DECREASED [None]
  - VOMITING [None]
  - MALAISE [None]
  - HEADACHE [None]
  - ARTHRALGIA [None]
  - ADVERSE DRUG REACTION [None]
  - FEELING ABNORMAL [None]
